FAERS Safety Report 12543939 (Version 1)
Quarter: 2016Q3

REPORT INFORMATION
  Report Type: Spontaneous
  Country: US (occurrence: None)
  Receive Date: 20160708
  Receipt Date: 20160708
  Transmission Date: 20161109
  Serious: No
  Sender: FDA-Public Use
  Company Number: None

PATIENT
  Age: 27 Year
  Sex: Male
  Weight: 81.65 kg

DRUGS (2)
  1. SUBOXONE [Suspect]
     Active Substance: BUPRENORPHINE HYDROCHLORIDE\NALOXONE HYDROCHLORIDE
     Indication: DRUG DEPENDENCE
  2. NALOXONE TABLETS 8MG [Suspect]
     Active Substance: NALOXONE

REACTIONS (5)
  - Vomiting [None]
  - Drug ineffective [None]
  - Constipation [None]
  - Nausea [None]
  - Dyspepsia [None]

NARRATIVE: CASE EVENT DATE: 20160526
